FAERS Safety Report 18610889 (Version 1)
Quarter: 2020Q4

REPORT INFORMATION
  Report Type: Spontaneous
  Country: CN (occurrence: CN)
  Receive Date: 20201214
  Receipt Date: 20201214
  Transmission Date: 20210114
  Serious: Yes (Other)
  Sender: FDA-Public Use
  Company Number: CN-PFIZER INC-2020490220

PATIENT
  Age: 32 Year
  Sex: Female
  Weight: 71 kg

DRUGS (3)
  1. PHARMORUBICIN [Suspect]
     Active Substance: EPIRUBICIN
     Indication: CHEMOTHERAPY
     Dosage: 130 MG, 1X/DAY
     Route: 041
     Dates: start: 20201201, end: 20201201
  2. CYCLOPHOSPHAMIDE. [Suspect]
     Active Substance: CYCLOPHOSPHAMIDE
     Indication: CHEMOTHERAPY
     Dosage: 1 G, 1X/DAY
     Route: 041
     Dates: start: 20201201, end: 20201201
  3. SODIUM CHLORIDE. [Concomitant]
     Active Substance: SODIUM CHLORIDE
     Indication: VEHICLE SOLUTION USE
     Dosage: 250 ML, 1X/DAY
     Route: 041
     Dates: start: 20201201, end: 20201201

REACTIONS (1)
  - Liver injury [Recovering/Resolving]

NARRATIVE: CASE EVENT DATE: 20201203
